FAERS Safety Report 6672395-X (Version None)
Quarter: 2010Q2

REPORT INFORMATION
  Report Type: 
  Country: None (occurrence: None)
  Receive Date: 20100408
  Receipt Date: 20100324
  Transmission Date: 20101027
  Serious: Yes (Other)
  Sender: FDA-Public Use
  Company Number: US-ELI_LILLY_AND_COMPANY-US201004000117

PATIENT
  Age: 49 Year
  Sex: Male

DRUGS (2)
  1. EFFIENT [Suspect]
     Dosage: 10 MG, UNK
  2. COUMADIN [Concomitant]

REACTIONS (2)
  - BLOOD URINE PRESENT [None]
  - PULMONARY EMBOLISM [None]
